FAERS Safety Report 14078874 (Version 2)
Quarter: 2017Q4

REPORT INFORMATION
  Report Type: Report from Study
  Country: US (occurrence: US)
  Receive Date: 20171012
  Receipt Date: 20171030
  Transmission Date: 20180321
  Serious: Yes (Death)
  Sender: FDA-Public Use
  Company Number: PHEH2017US032740

PATIENT
  Sex: Male

DRUGS (1)
  1. MEKINIST [Suspect]
     Active Substance: TRAMETINIB DIMETHYL SULFOXIDE
     Indication: METASTATIC MALIGNANT MELANOMA
     Dosage: 2 MG, QD
     Route: 048
     Dates: start: 201707, end: 201708

REACTIONS (5)
  - Metastatic malignant melanoma [Fatal]
  - Malignant neoplasm progression [Fatal]
  - Rash [Recovering/Resolving]
  - Skin lesion [Fatal]
  - Stomatitis [Recovering/Resolving]
